FAERS Safety Report 9734861 (Version 2)
Quarter: 2013Q4

REPORT INFORMATION
  Report Type: Spontaneous
  Country: TH (occurrence: TH)
  Receive Date: 20131206
  Receipt Date: 20131206
  Transmission Date: 20140711
  Serious: Yes (Hospitalization)
  Sender: FDA-Public Use
  Company Number: TH-JNJFOC-20131010168

PATIENT
  Sex: Female
  Weight: 60 kg

DRUGS (9)
  1. INVEGA SUSTENNA [Suspect]
     Indication: SCHIZOPHRENIA
     Route: 030
  2. INVEGA SUSTENNA [Suspect]
     Indication: SCHIZOPHRENIA
     Route: 030
  3. INVEGA SUSTENNA [Suspect]
     Indication: SCHIZOPHRENIA
     Route: 030
     Dates: start: 20130722
  4. RISPERDAL [Suspect]
     Indication: SCHIZOPHRENIA
     Dosage: STARTED BEFORE 2008; SLOWLY TAPERED DOSE TO 2MG/DAY.
     Route: 048
  5. RISPERDAL [Suspect]
     Indication: SCHIZOPHRENIA
     Route: 048
  6. RISPERDAL [Suspect]
     Indication: SCHIZOPHRENIA
     Dosage: TAILED OFF FROM 2 MG IN 1 MONTH
     Route: 048
     Dates: end: 20130822
  7. FLUOXETINE [Concomitant]
     Indication: DEPRESSION
     Dosage: STARTED BEFORE 2008
     Route: 048
     Dates: end: 20131107
  8. VALPROATE SODIUM [Concomitant]
     Indication: DEPRESSION
     Dosage: STARTED BEFORE 2008
     Route: 048
     Dates: end: 20131107
  9. TRIHEXYPHENIDYL [Concomitant]
     Indication: PROPHYLAXIS
     Dosage: STARTED BEFORE 2008
     Route: 048
     Dates: end: 20130822

REACTIONS (4)
  - Hallucination, auditory [Recovered/Resolved]
  - Paranoia [Recovered/Resolved]
  - Underdose [Unknown]
  - Dry mouth [Unknown]
